FAERS Safety Report 9241721 (Version 1)
Quarter: 2013Q2

REPORT INFORMATION
  Report Type: Spontaneous
  Country: US (occurrence: US)
  Receive Date: 20130419
  Receipt Date: 20130419
  Transmission Date: 20140414
  Serious: Yes (Hospitalization, Other)
  Sender: FDA-Public Use
  Company Number: US-ELI_LILLY_AND_COMPANY-US201304004086

PATIENT
  Age: 57 Year
  Sex: Male

DRUGS (1)
  1. INSULIN, HUMAN [Suspect]
     Dosage: UNK
     Route: 058

REACTIONS (3)
  - Blood glucose increased [Recovering/Resolving]
  - Wrong technique in drug usage process [Not Recovered/Not Resolved]
  - Drug dose omission [Unknown]
